FAERS Safety Report 13618581 (Version 1)
Quarter: 2017Q2

REPORT INFORMATION
  Report Type: Spontaneous
  Country: RO (occurrence: RO)
  Receive Date: 20170606
  Receipt Date: 20170606
  Transmission Date: 20170830
  Serious: Yes (Other)
  Sender: FDA-Public Use
  Company Number: RO-MYLANLABS-2017M1033905

PATIENT

DRUGS (2)
  1. ZOLEDRONIC ACID [Suspect]
     Active Substance: ZOLEDRONIC ACID
     Indication: RENAL CANCER METASTATIC
     Route: 065
     Dates: start: 201404
  2. SUNITINIB [Suspect]
     Active Substance: SUNITINIB
     Indication: RENAL CANCER METASTATIC
     Dosage: 4 WEEKS ON/2 WEEKS OFF
     Route: 048
     Dates: start: 201303

REACTIONS (8)
  - Dry skin [Unknown]
  - Swelling [Unknown]
  - Drug resistance [Unknown]
  - Oedema [Unknown]
  - Yellow skin [Unknown]
  - Hypertension [Recovering/Resolving]
  - Fatigue [Unknown]
  - Neurotoxicity [Unknown]

NARRATIVE: CASE EVENT DATE: 201404
